FAERS Safety Report 12930852 (Version 1)
Quarter: 2016Q4

REPORT INFORMATION
  Report Type: Spontaneous
  Country: US (occurrence: US)
  Receive Date: 20161110
  Receipt Date: 20161110
  Transmission Date: 20170207
  Serious: No
  Sender: FDA-Public Use
  Company Number: US-JAZZ-2016-US-017075

PATIENT
  Sex: Female

DRUGS (13)
  1. HORIZANT [Concomitant]
     Active Substance: GABAPENTIN ENACARBIL
  2. CLONAZEPAM. [Concomitant]
     Active Substance: CLONAZEPAM
  3. PROPRANOLOL [Concomitant]
     Active Substance: PROPRANOLOL\PROPRANOLOL HYDROCHLORIDE
  4. PROMETRIUM [Concomitant]
     Active Substance: PROGESTERONE
  5. BUPROPION. [Concomitant]
     Active Substance: BUPROPION
  6. COVARYX [Concomitant]
     Active Substance: ESTROGENS, ESTERIFIED\METHYLTESTOSTERONE
  7. CYTOMEL [Concomitant]
     Active Substance: LIOTHYRONINE SODIUM
  8. MELATONIN [Concomitant]
     Active Substance: MELATONIN
  9. LUNESTA [Concomitant]
     Active Substance: ESZOPICLONE
  10. SYNTHROID [Concomitant]
     Active Substance: LEVOTHYROXINE SODIUM
  11. XYREM [Suspect]
     Active Substance: SODIUM OXYBATE
     Indication: INSOMNIA
     Dosage: 2.25 G, BID
     Route: 048
     Dates: start: 201608
  12. GABAPENTIN. [Concomitant]
     Active Substance: GABAPENTIN
  13. AMPIGEN [Concomitant]

REACTIONS (1)
  - Heart rate increased [Not Recovered/Not Resolved]

NARRATIVE: CASE EVENT DATE: 2016
